FAERS Safety Report 8392348-3 (Version None)
Quarter: 2012Q2

REPORT INFORMATION
  Report Type: 
  Country: None (occurrence: None)
  Receive Date: 20120529
  Receipt Date: 20120514
  Transmission Date: 20120825
  Serious: Yes (Other)
  Sender: FDA-Public Use
  Company Number: NL-ROCHE-1072267

PATIENT

DRUGS (1)
  1. AVASTIN [Suspect]
     Indication: DIABETIC RETINOPATHY
     Route: 050

REACTIONS (1)
  - RETINAL FIBROSIS [None]
